FAERS Safety Report 14945526 (Version 1)
Quarter: 2018Q2

REPORT INFORMATION
  Report Type: Spontaneous
  Country: US (occurrence: US)
  Receive Date: 20180508
  Receipt Date: 20180508
  Transmission Date: 20180711
  Serious: Yes (Other)
  Sender: FDA-Public Use
  Company Number: None

PATIENT
  Age: 78 Year
  Sex: Male
  Weight: 87.09 kg

DRUGS (7)
  1. ATORVASTATIN [Concomitant]
     Active Substance: ATORVASTATIN
  2. CYCLOPHOSPHAMIDE 50 MG [Suspect]
     Active Substance: CYCLOPHOSPHAMIDE
     Indication: PLASMA CELL MYELOMA
     Route: 048
     Dates: start: 20170208
  3. ACYCLOVIR. [Concomitant]
     Active Substance: ACYCLOVIR
  4. METOPROLOL. [Concomitant]
     Active Substance: METOPROLOL
  5. TRAMADOL. [Concomitant]
     Active Substance: TRAMADOL
  6. LISINOPRIL. [Concomitant]
     Active Substance: LISINOPRIL
  7. DEXAMETHASONE. [Concomitant]
     Active Substance: DEXAMETHASONE

REACTIONS (1)
  - Cerebrovascular accident [None]
